FAERS Safety Report 18042977 (Version 4)
Quarter: 2020Q3

REPORT INFORMATION
  Report Type: Other
  Country: PL (occurrence: PL)
  Receive Date: 20200720
  Receipt Date: 20200814
  Transmission Date: 20201103
  Serious: Yes (Hospitalization)
  Sender: FDA-Public Use
  Company Number: PL-ROCHE-2583004

PATIENT
  Age: 65 Year
  Sex: Female
  Weight: 53 kg

DRUGS (10)
  1. ENCORTON [Concomitant]
     Active Substance: PREDNISONE
     Indication: NEUTROPENIA
     Dates: start: 20190808
  2. NAPROXEN. [Concomitant]
     Active Substance: NAPROXEN
  3. POLFILIN PROLONGATUM [Concomitant]
  4. OMEPRAZOL [Concomitant]
     Active Substance: OMEPRAZOLE
  5. ATEZOLIZUMAB. [Suspect]
     Active Substance: ATEZOLIZUMAB
     Indication: TRANSITIONAL CELL CARCINOMA
     Dosage: DATE OF MOST RECENT DOSE OF ATEZOLIZUMAB PRIOR TO THE ONSET OF SAE: 24/MAR/2020.?ON 10/JUL/2019, 19/
     Route: 042
  6. ATEZOLIZUMAB. [Suspect]
     Active Substance: ATEZOLIZUMAB
     Indication: SMALL CELL LUNG CANCER
  7. MEGALIA [Concomitant]
     Active Substance: MEGESTROL ACETATE
  8. ATEZOLIZUMAB. [Suspect]
     Active Substance: ATEZOLIZUMAB
     Indication: NON-SMALL CELL LUNG CANCER
  9. ACIDUM FOLICUM [Concomitant]
     Active Substance: FOLIC ACID
  10. CLEXANE [Concomitant]
     Active Substance: ENOXAPARIN SODIUM

REACTIONS (2)
  - Fatigue [Recovered/Resolved]
  - Joint stiffness [Recovered/Resolved]

NARRATIVE: CASE EVENT DATE: 20200405
